FAERS Safety Report 4264836-2 (Version None)
Quarter: 2004Q1

REPORT INFORMATION
  Report Type: 
  Country: None (occurrence: None)
  Receive Date: 20040105
  Receipt Date: 20031219
  Transmission Date: 20041129
  Serious: Yes (Death, Hospitalization)
  Sender: FDA-Public Use
  Company Number: 200313919FR

PATIENT
  Age: 58 Year
  Sex: Female

DRUGS (2)
  1. RIFAMPICIN [Suspect]
     Dosage: 120 MG BID IV
     Route: 042
     Dates: start: 20030914, end: 20030923
  2. FUCIDINE CAP [Suspect]
     Dosage: 500 MG TID IV
     Route: 042
     Dates: start: 20030914

REACTIONS (8)
  - ANURIA [None]
  - CONDITION AGGRAVATED [None]
  - CONFUSIONAL STATE [None]
  - GENERALISED OEDEMA [None]
  - HALLUCINATION, VISUAL [None]
  - PIGMENTATION DISORDER [None]
  - RENAL FAILURE CHRONIC [None]
  - SKIN DISCOLOURATION [None]
